FAERS Safety Report 24144583 (Version 1)
Quarter: 2024Q3

REPORT INFORMATION
  Report Type: Spontaneous
  Country: JP (occurrence: JP)
  Receive Date: 20240728
  Receipt Date: 20240728
  Transmission Date: 20241017
  Serious: Yes (Death, Other)
  Sender: SANOFI AVENTIS
  Company Number: JP-SAKK-2024SA205033AA

PATIENT
  Age: 70 Year
  Sex: Female
  Weight: 45 kg

DRUGS (1)
  1. FABRAZYME [Suspect]
     Active Substance: AGALSIDASE BETA
     Indication: Fabry^s disease
     Dosage: DAILY DOSE: 45 MG/DOSE
     Route: 041

REACTIONS (1)
  - Neoplasm malignant [Fatal]
